FAERS Safety Report 13714336 (Version 1)
Quarter: 2017Q3

REPORT INFORMATION
  Report Type: Report from Study
  Country: US (occurrence: US)
  Receive Date: 20170704
  Receipt Date: 20170704
  Transmission Date: 20171127
  Serious: Yes (Hospitalization)
  Sender: FDA-Public Use
  Company Number: US-BIOGEN-2012BI019674

PATIENT
  Age: 60 Year
  Sex: Female

DRUGS (1)
  1. TYSABRI [Suspect]
     Active Substance: NATALIZUMAB
     Indication: MULTIPLE SCLEROSIS
     Dosage: INFUSED OVER 1 HOUR
     Route: 042
     Dates: start: 20080908, end: 20130222

REACTIONS (11)
  - Pneumonia [Recovered/Resolved]
  - Head injury [Unknown]
  - Tremor [Recovered/Resolved]
  - Pain [Recovered/Resolved]
  - Drug dose omission [Recovered/Resolved]
  - Fall [Recovered/Resolved]
  - Gait disturbance [Not Recovered/Not Resolved]
  - Limb crushing injury [Recovered/Resolved with Sequelae]
  - Post-traumatic neck syndrome [Recovered/Resolved]
  - Hot flush [Recovered/Resolved]
  - Herpes zoster [Recovered/Resolved]

NARRATIVE: CASE EVENT DATE: 2011
